FAERS Safety Report 6677685-2 (Version None)
Quarter: 2010Q2

REPORT INFORMATION
  Report Type: 
  Country: None (occurrence: None)
  Receive Date: 20100412
  Receipt Date: 20100315
  Transmission Date: 20101027
  Serious: No
  Sender: FDA-Public Use
  Company Number: US-ALEXION-A201000291

PATIENT
  Sex: Female

DRUGS (13)
  1. SOLIRIS [Suspect]
     Indication: PAROXYSMAL NOCTURNAL HAEMOGLOBINURIA
     Dosage: 600 MG, QW
     Route: 042
     Dates: start: 20090916, end: 20091006
  2. SOLIRIS [Suspect]
     Dosage: 900 MG, UNK
     Route: 042
     Dates: start: 20091013
  3. NEURONTIN [Concomitant]
     Dosage: 300 MG, TID
     Route: 048
  4. GLIPIZIDE [Concomitant]
     Dosage: 5 MG, QD
     Route: 048
  5. NORVASC [Concomitant]
     Dosage: UNK
     Route: 048
  6. NEXIUM [Concomitant]
     Dosage: 40 MG, QD
     Route: 048
  7. EXJADE [Concomitant]
     Dosage: UNK
     Route: 048
  8. BENAZEPRIL HYDROCHLORIDE [Concomitant]
     Dosage: UNK
     Route: 048
  9. CYCLOSPORINE [Concomitant]
     Dosage: UNK
     Route: 048
  10. ZOFRAN [Concomitant]
     Dosage: UNK
     Route: 048
  11. SIMVASTATIN [Concomitant]
     Dosage: UNK
     Route: 048
  12. PROCRIT                            /00909301/ [Concomitant]
     Dosage: UNK
  13. NEUPOGEN [Concomitant]
     Dosage: UNK

REACTIONS (3)
  - BLOOD LACTATE DEHYDROGENASE INCREASED [None]
  - BLOOD PRODUCT TRANSFUSION DEPENDENT [None]
  - CONDITION AGGRAVATED [None]
